FAERS Safety Report 8211619-4 (Version None)
Quarter: 2012Q1

REPORT INFORMATION
  Report Type: 
  Country: None (occurrence: None)
  Receive Date: 20120315
  Receipt Date: 20120306
  Transmission Date: 20120608
  Serious: Yes (Other)
  Sender: FDA-Public Use
  Company Number: IE-JNJFOC-20110611172

PATIENT
  Sex: Female

DRUGS (6)
  1. GLUCOPHAGE [Concomitant]
  2. SIMPONI [Suspect]
     Indication: ANKYLOSING SPONDYLITIS
     Route: 058
     Dates: start: 20110420, end: 20110520
  3. METHOTREXATE [Concomitant]
     Route: 048
  4. ACETAMINOPHEN AND TRAMADOL HCL [Concomitant]
  5. LYRICA [Concomitant]
  6. ACETAMINOPHEN AND TRAMADOL HCL [Concomitant]

REACTIONS (3)
  - DRUG INEFFECTIVE [None]
  - ADVERSE DRUG REACTION [None]
  - NEURALGIA [None]
